FAERS Safety Report 12404309 (Version 1)
Quarter: 2016Q2

REPORT INFORMATION
  Report Type: Spontaneous
  Country: US (occurrence: US)
  Receive Date: 20160525
  Receipt Date: 20160525
  Transmission Date: 20160815
  Serious: No
  Sender: FDA-Public Use
  Company Number: US-TARO-2015TAR00975

PATIENT
  Sex: Male

DRUGS (1)
  1. FEVERALL [Suspect]
     Active Substance: ACETAMINOPHEN
     Dosage: 80 MG, ONCE
     Route: 048
     Dates: start: 20151012, end: 20151012

REACTIONS (4)
  - Anxiety [Not Recovered/Not Resolved]
  - Incorrect route of drug administration [Unknown]
  - Accidental exposure to product [Recovered/Resolved]
  - Nervousness [Not Recovered/Not Resolved]

NARRATIVE: CASE EVENT DATE: 20151012
